FAERS Safety Report 4330731-3 (Version None)
Quarter: 2004Q1

REPORT INFORMATION
  Report Type: 
  Country: None (occurrence: None)
  Receive Date: 20040331
  Receipt Date: 20040319
  Transmission Date: 20041129
  Serious: Yes (Life-Threatening, Hospitalization)
  Sender: FDA-Public Use
  Company Number: HQWYE700710MAR04

PATIENT
  Age: 85 Year
  Sex: Male

DRUGS (10)
  1. ANCARON (AMIODARONE, TABLET) [Suspect]
     Indication: ATRIAL FIBRILLATION
     Dosage: 50 MG 1X PER 1 DAY
     Route: 048
     Dates: end: 20040210
  2. LASIX [Concomitant]
  3. ALLOPURINOL [Concomitant]
  4. NORVASC [Concomitant]
  5. HARNAL (TAMSOLUSIN HYDROCHLORIDE) [Concomitant]
  6. ASPIRIN [Concomitant]
  7. EPADEL (ETHYL ICOSAPENTATE) [Concomitant]
  8. MAGNESIUM OXIDE (MAGNESIUM OXIDE) [Concomitant]
  9. METHYLCOBAL (MECOBALAMIN) [Concomitant]
  10. OPALMON (LIMAPROST) [Concomitant]

REACTIONS (6)
  - ANAEMIA [None]
  - CARDIAC FAILURE [None]
  - CRYPTOGENIC ORGANIZING PNEUMONIA [None]
  - EPISTAXIS [None]
  - MALIGNANT NEOPLASM PROGRESSION [None]
  - RESPIRATORY FAILURE [None]
